FAERS Safety Report 22287085 (Version 6)
Quarter: 2023Q2

REPORT INFORMATION
  Report Type: Spontaneous
  Country: CA (occurrence: CA)
  Receive Date: 20230505
  Receipt Date: 20230628
  Transmission Date: 20230722
  Serious: Yes (Other)
  Sender: FDA-Public Use
  Company Number: CA-PFIZER INC-202300178052

PATIENT
  Age: 40 Year
  Sex: Female

DRUGS (7)
  1. ABRILADA [Suspect]
     Active Substance: ADALIMUMAB-AFZB
     Indication: Hidradenitis
     Dosage: 160MG AT WEEK 0, 80MG AT WEEK 2, THEN 40MG EVERY WEEK
     Route: 058
     Dates: start: 20230501
  2. ABRILADA [Suspect]
     Active Substance: ADALIMUMAB-AFZB
     Indication: Anal abscess
     Dosage: 80 MG AFTER 2 WEEKS (160MG AT WEEK 0, 80MG AT WEEK 2, THEN 40MG EVERY WEEK)
     Route: 058
     Dates: start: 20230515
  3. ABRILADA [Suspect]
     Active Substance: ADALIMUMAB-AFZB
     Indication: Rectal abscess
     Dosage: 40 MG (WEEK 4, 160MG AT WEEK 0, 80MG AT WEEK 2, THEN 40MG EVERY WEEK)
     Route: 058
     Dates: start: 20230530
  4. ABRILADA [Suspect]
     Active Substance: ADALIMUMAB-AFZB
     Dosage: 40 MG EVERY WEEK
     Route: 058
     Dates: start: 20230605
  5. ABRILADA [Suspect]
     Active Substance: ADALIMUMAB-AFZB
     Dosage: 40 MG, WEEKLY
     Dates: start: 20230612
  6. CLINDAMYCIN [Concomitant]
     Active Substance: CLINDAMYCIN
     Dosage: UNK
  7. RIFAMPIN [Concomitant]
     Active Substance: RIFAMPIN
     Dosage: UNK

REACTIONS (17)
  - Anorectal disorder [Not Recovered/Not Resolved]
  - Abdominal pain [Recovered/Resolved]
  - Abdominal pain upper [Recovering/Resolving]
  - Diarrhoea [Recovered/Resolved]
  - Injection site erythema [Unknown]
  - Injection site oedema [Unknown]
  - Injection site pain [Unknown]
  - Injection site pruritus [Unknown]
  - Injection site rash [Recovered/Resolved]
  - Injection site reaction [Recovered/Resolved]
  - Injection site warmth [Unknown]
  - Nausea [Recovered/Resolved]
  - Pain in extremity [Unknown]
  - Erythema [Recovered/Resolved]
  - Oedema [Recovered/Resolved]
  - Pruritus [Recovered/Resolved]
  - Skin fragility [Unknown]

NARRATIVE: CASE EVENT DATE: 20230101
